FAERS Safety Report 24321469 (Version 1)
Quarter: 2024Q3

REPORT INFORMATION
  Report Type: Spontaneous
  Country: IT (occurrence: None)
  Receive Date: 20240916
  Receipt Date: 20240916
  Transmission Date: 20241017
  Serious: Yes (Hospitalization)
  Sender: ASTRAZENECA
  Company Number: 2024A207006

PATIENT
  Age: 56 Year
  Sex: Female

DRUGS (2)
  1. IMFINZI [Suspect]
     Active Substance: DURVALUMAB
     Indication: Lung adenocarcinoma
     Route: 042
     Dates: start: 20240430, end: 20240625
  2. IMFINZI [Suspect]
     Active Substance: DURVALUMAB
     Indication: Lung adenocarcinoma
     Route: 042
     Dates: start: 20240905

REACTIONS (1)
  - Pulmonary toxicity [Recovering/Resolving]

NARRATIVE: CASE EVENT DATE: 20240701
